FAERS Safety Report 5719448-8 (Version None)
Quarter: 2008Q2

REPORT INFORMATION
  Report Type: 
  Country: None (occurrence: None)
  Receive Date: 20080428
  Receipt Date: 20080414
  Transmission Date: 20081010
  Serious: Yes (Hospitalization)
  Sender: FDA-Public Use
  Company Number: FR-AMGEN-UK261419

PATIENT
  Sex: Male

DRUGS (8)
  1. NEUPOGEN [Suspect]
     Indication: NEUTROPENIA
     Route: 042
     Dates: start: 20070905
  2. NEORAL [Concomitant]
     Route: 048
     Dates: start: 20070831
  3. ACYCLOVIR [Concomitant]
     Route: 042
     Dates: start: 20070914
  4. TAZOCILLINE [Concomitant]
     Route: 042
     Dates: start: 20070831, end: 20071009
  5. COLIMYCINE [Concomitant]
     Route: 048
     Dates: start: 20070901
  6. POSACONAZOLE [Concomitant]
     Route: 042
     Dates: start: 20070901, end: 20071004
  7. NEXIUM [Concomitant]
     Route: 042
     Dates: start: 20070914
  8. TAVANIC [Concomitant]

REACTIONS (2)
  - HEPATITIS CHOLESTATIC [None]
  - JAUNDICE [None]
